FAERS Safety Report 15391660 (Version 1)
Quarter: 2018Q3

REPORT INFORMATION
  Report Type: Spontaneous
  Country: AU (occurrence: AU)
  Receive Date: 20180917
  Receipt Date: 20180917
  Transmission Date: 20181010
  Serious: Yes (Life-Threatening, Disabling)
  Sender: FDA-Public Use
  Company Number: PHHY2018AU072517

PATIENT
  Sex: Male

DRUGS (1)
  1. METHYLPHENIDATE HYDROCHLORIDE. [Suspect]
     Active Substance: METHYLPHENIDATE HYDROCHLORIDE
     Indication: CLUSTER HEADACHE
     Dosage: UNK
     Route: 065

REACTIONS (3)
  - Cluster headache [Unknown]
  - Drug ineffective [Unknown]
  - Product use in unapproved indication [Unknown]
